FAERS Safety Report 4450747-6 (Version None)
Quarter: 2004Q3

REPORT INFORMATION
  Report Type: 
  Country: None (occurrence: None)
  Receive Date: 20040914
  Receipt Date: 20040914
  Transmission Date: 20050211
  Serious: Yes (Hospitalization)
  Sender: FDA-Public Use
  Company Number: None

PATIENT
  Sex: Female
  Weight: 63.9572 kg

DRUGS (1)
  1. LIFENET CADAVER GRAFT [Suspect]
     Dosage: MODEL # UNOS #03-4508-004
     Dates: start: 20040728

REACTIONS (9)
  - ARTHRALGIA [None]
  - BONE MARROW DEPRESSION [None]
  - FEELING ABNORMAL [None]
  - GRAFT COMPLICATION [None]
  - LEUKOPENIA [None]
  - PAIN [None]
  - PYREXIA [None]
  - SERRATIA INFECTION [None]
  - SWELLING [None]
